FAERS Safety Report 9748785 (Version 1)
Quarter: 2013Q4

REPORT INFORMATION
  Report Type: Spontaneous
  Country: US (occurrence: None)
  Receive Date: 20131211
  Receipt Date: 20131211
  Transmission Date: 20140711
  Serious: Yes (Hospitalization)
  Sender: FDA-Public Use
  Company Number: None

PATIENT
  Age: 76 Year
  Sex: Male
  Weight: 121.8 kg

DRUGS (1)
  1. DAPTOMYCIN (CUBICIN) [Suspect]
     Indication: OSTEOMYELITIS
     Route: 042
     Dates: start: 20131114, end: 20131121

REACTIONS (6)
  - Pyrexia [None]
  - Mental status changes [None]
  - Dyspnoea [None]
  - Traumatic lung injury [None]
  - Lung infiltration [None]
  - Drug hypersensitivity [None]
